FAERS Safety Report 9166946 (Version 2)
Quarter: 2013Q2

REPORT INFORMATION
  Report Type: Spontaneous
  Country: US (occurrence: US)
  Receive Date: 20130317
  Receipt Date: 20130401
  Transmission Date: 20140414
  Serious: Yes (Hospitalization)
  Sender: FDA-Public Use
  Company Number: US-B.I. PHARMACEUTICALS,INC./RIDGEFIELD-2013-BI-06363BP

PATIENT
  Age: 86 Year
  Sex: Female
  Weight: 54 kg

DRUGS (12)
  1. SPIRIVA [Suspect]
     Indication: CHRONIC OBSTRUCTIVE PULMONARY DISEASE
     Dosage: 18 MCG
     Route: 055
     Dates: start: 2007
  2. FORADIL [Concomitant]
     Indication: CHRONIC OBSTRUCTIVE PULMONARY DISEASE
     Dosage: 24 MCG
     Route: 055
     Dates: start: 2007
  3. PULMICORT FLEXHALER [Concomitant]
     Dosage: 360 MCG
     Route: 055
     Dates: start: 20120911
  4. ALBUTEROL SULFATE [Concomitant]
     Route: 055
     Dates: start: 20120911
  5. POTASSIUM CHLORIDE ER [Concomitant]
     Dosage: 10 MEQ
     Route: 048
     Dates: start: 20110725
  6. LASIX [Concomitant]
     Dosage: 40 MG
     Route: 048
     Dates: start: 20110725
  7. TOPROL XL [Concomitant]
     Dosage: 100 MG
     Route: 048
     Dates: start: 20110725
  8. ZOLOFT [Concomitant]
     Dosage: 100 MG
     Route: 048
     Dates: start: 20110721
  9. ASPIR-81 [Concomitant]
     Dosage: 81 MG
     Route: 048
     Dates: start: 20110721
  10. XANAX [Concomitant]
     Dosage: 1.5 MG
     Route: 048
     Dates: start: 20110721
  11. MUCINEX [Concomitant]
     Dosage: 1200 MG
     Route: 048
     Dates: start: 20110721
  12. MULTIVITAMIN [Concomitant]
     Route: 048
     Dates: start: 20110721

REACTIONS (3)
  - Lower limb fracture [Recovered/Resolved]
  - Device breakage [Recovered/Resolved]
  - Fall [Recovered/Resolved]
